FAERS Safety Report 5694398-4 (Version None)
Quarter: 2008Q2

REPORT INFORMATION
  Report Type: 
  Country: None (occurrence: None)
  Receive Date: 20080402
  Receipt Date: 20080320
  Transmission Date: 20081010
  Serious: Yes (Other)
  Sender: FDA-Public Use
  Company Number: 107#08#2008-01651

PATIENT
  Age: 62 Year
  Sex: Male

DRUGS (1)
  1. AMIODARONE HCL [Suspect]
     Indication: DRUG USE FOR UNKNOWN INDICATION
     Dosage: INTRAVENOUS (NOT OTHERWISE SPECIFIED)
     Route: 042

REACTIONS (4)
  - ELECTROCARDIOGRAM T WAVE INVERSION [None]
  - LONG QT SYNDROME [None]
  - TORSADE DE POINTES [None]
  - VENTRICULAR FIBRILLATION [None]
